FAERS Safety Report 23861259 (Version 2)
Quarter: 2024Q2

REPORT INFORMATION
  Report Type: Spontaneous
  Country: US (occurrence: US)
  Receive Date: 20240516
  Receipt Date: 20240527
  Transmission Date: 20240716
  Serious: Yes (Other)
  Sender: FDA-Public Use
  Company Number: US-TEVA-VS-3197046

PATIENT
  Age: 7 Decade
  Sex: Female

DRUGS (8)
  1. LETROZOLE [Suspect]
     Active Substance: LETROZOLE
     Indication: Invasive ductal breast carcinoma
     Route: 065
     Dates: end: 202301
  2. FULVESTRANT [Suspect]
     Active Substance: FULVESTRANT
     Indication: Invasive ductal breast carcinoma
     Route: 065
  3. TRASTUZUMAB [Suspect]
     Active Substance: TRASTUZUMAB
     Indication: Invasive ductal breast carcinoma
     Route: 065
     Dates: start: 2017, end: 202301
  4. ADO-TRASTUZUMAB EMTANSINE [Suspect]
     Active Substance: ADO-TRASTUZUMAB EMTANSINE
     Indication: Invasive ductal breast carcinoma
     Route: 042
     Dates: start: 202003
  5. ADO-TRASTUZUMAB EMTANSINE [Suspect]
     Active Substance: ADO-TRASTUZUMAB EMTANSINE
     Indication: Invasive ductal breast carcinoma
     Route: 042
     Dates: end: 202301
  6. PERTUZUMAB [Suspect]
     Active Substance: PERTUZUMAB
     Indication: Invasive ductal breast carcinoma
     Route: 065
     Dates: start: 2017, end: 202301
  7. TUCATINIB [Suspect]
     Active Substance: TUCATINIB
     Indication: Invasive ductal breast carcinoma
     Route: 048
  8. TUCATINIB [Suspect]
     Active Substance: TUCATINIB
     Indication: Invasive ductal breast carcinoma
     Route: 048
     Dates: start: 202003, end: 202301

REACTIONS (5)
  - Drug ineffective [Unknown]
  - Drug intolerance [Unknown]
  - Liver injury [Recovering/Resolving]
  - Telangiectasia [Recovering/Resolving]
  - Emotional disorder [Recovering/Resolving]
